FAERS Safety Report 8088018-1 (Version None)
Quarter: 2012Q1

REPORT INFORMATION
  Report Type: 
  Country: None (occurrence: None)
  Receive Date: 20120128
  Receipt Date: 20110526
  Transmission Date: 20120608
  Serious: No
  Sender: FDA-Public Use
  Company Number: US-ABBOTT-11P-163-0728875-00

PATIENT
  Sex: Male
  Weight: 67.192 kg

DRUGS (5)
  1. HUMIRA [Suspect]
     Dates: start: 20110301
  2. METRONIDAZOLE [Concomitant]
     Indication: CROHN'S DISEASE
  3. POLY CITRIC K [Concomitant]
     Indication: NEPHROLITHIASIS
  4. VITAMIN D [Concomitant]
     Indication: VITAMIN D DECREASED
  5. HUMIRA [Suspect]
     Indication: CROHN'S DISEASE
     Dates: start: 20090101, end: 20110201

REACTIONS (3)
  - MYALGIA [None]
  - MOVEMENT DISORDER [None]
  - ARTHRALGIA [None]
